FAERS Safety Report 11841370 (Version 1)
Quarter: 2015Q4

REPORT INFORMATION
  Report Type: Spontaneous
  Country: US (occurrence: US)
  Receive Date: 20151216
  Receipt Date: 20151216
  Transmission Date: 20160305
  Serious: No
  Sender: FDA-Public Use
  Company Number: US-BAUSCH-BL-2015-019759

PATIENT
  Age: 16 Year
  Sex: Male
  Weight: 51.3 kg

DRUGS (2)
  1. AMITRIPTYLINE [Concomitant]
     Active Substance: AMITRIPTYLINE
     Indication: ANXIETY
     Route: 048
     Dates: start: 20150810
  2. APRISO [Suspect]
     Active Substance: MESALAMINE
     Indication: COLITIS
     Dosage: 2 CAPSULES AT NIGHT WITH DINNER
     Route: 048
     Dates: start: 20150810

REACTIONS (2)
  - Wrong technique in product usage process [Unknown]
  - No adverse event [Unknown]

NARRATIVE: CASE EVENT DATE: 20150810
